FAERS Safety Report 15419185 (Version 3)
Quarter: 2019Q1

REPORT INFORMATION
  Report Type: Spontaneous
  Country: PT (occurrence: PT)
  Receive Date: 20180924
  Receipt Date: 20190225
  Transmission Date: 20190417
  Serious: Yes (Disabling, Other)
  Sender: FDA-Public Use
  Company Number: PT-NALPROPION PHARMACEUTICALS INC.-2018-005720

PATIENT

DRUGS (3)
  1. XANAX [Concomitant]
     Active Substance: ALPRAZOLAM
     Indication: ANXIETY
     Dosage: 1 DF, 1 DAY
     Route: 065
     Dates: start: 2017
  2. MYSIMBA (NALTREXONE HCL/BUPROPION HCL) PROLONGED-RELEASE TABLET [Suspect]
     Active Substance: BUPROPION HYDROCHLORIDE\NALTREXONE HYDROCHLORIDE
     Indication: OVERWEIGHT
  3. MYSIMBA (NALTREXONE HCL/BUPROPION HCL) PROLONGED-RELEASE TABLET [Suspect]
     Active Substance: BUPROPION HYDROCHLORIDE\NALTREXONE HYDROCHLORIDE
     Indication: OVERWEIGHT
     Dosage: 1 DF, 1 DAY (1 TAKEN AT BREAKFAST; 90 MG + 8 MG/DAY)
     Route: 048
     Dates: start: 20180829, end: 20180905

REACTIONS (5)
  - Drug ineffective [Recovered/Resolved]
  - Emotional disorder [Recovered/Resolved]
  - Derealisation [Recovered/Resolved]
  - Increased appetite [Recovered/Resolved]
  - Tobacco user [Recovered/Resolved]

NARRATIVE: CASE EVENT DATE: 20180830
